FAERS Safety Report 8229772 (Version 7)
Quarter: 2014Q4

REPORT INFORMATION
  Report Type: Report from Study
  Country: JP (occurrence: JP)
  Receive Date: 20111104
  Receipt Date: 20141109
  Transmission Date: 20150529
  Serious: Yes (Death, Hospitalization, Other)
  Sender: FDA-Public Use
  Company Number: JP-AMGEN-JPNCT2011057481

PATIENT
  Age: 73 Year
  Sex: Male
  Weight: 49 kg

DRUGS (33)
  1. WARFARIN [Concomitant]
     Active Substance: WARFARIN
     Dosage: 1 MG, UNK
     Route: 048
     Dates: end: 20111016
  2. SIGMART [Concomitant]
     Active Substance: NICORANDIL
     Dosage: 15 MG, UNK
     Route: 048
     Dates: end: 20111016
  3. LYRICA [Concomitant]
     Active Substance: PREGABALIN
     Dosage: 150 MG, UNK
     Route: 048
     Dates: end: 20111016
  4. YODEL [Concomitant]
     Active Substance: SENNA LEAF
     Dosage: 2 DF, UNK
     Route: 048
     Dates: end: 20111016
  5. FLUOROURACIL. [Concomitant]
     Active Substance: FLUOROURACIL
     Dosage: 380 MG, Q2WEEKS
     Route: 040
     Dates: start: 20111018, end: 20111018
  6. OPSO [Concomitant]
     Active Substance: MORPHINE HYDROCHLORIDE
     Dosage: 40 MG, UNK
     Route: 048
     Dates: start: 20111004, end: 20111024
  7. FLUOROURACIL. [Concomitant]
     Active Substance: FLUOROURACIL
     Dosage: 3960 MG, Q2WEEKS
     Route: 041
     Dates: start: 20110916, end: 20110918
  8. BAYASPIRIN [Concomitant]
     Active Substance: ASPIRIN
     Dosage: 100 MG, UNK
     Route: 048
     Dates: end: 20111016
  9. HARNAL [Concomitant]
     Active Substance: TAMSULOSIN HYDROCHLORIDE
     Dosage: 0.2 MG, UNK
     Route: 048
     Dates: start: 20111018, end: 20111024
  10. HIRUDOID [Concomitant]
     Active Substance: GLYCOSAMINOGLYCANS
     Indication: PROPHYLAXIS
     Dosage: UNK
     Route: 062
     Dates: start: 20111004
  11. NOVAMIN [Concomitant]
     Active Substance: PROCHLORPERAZINE MALEATE
     Dosage: 15 MG, UNK
     Route: 048
     Dates: start: 20110930, end: 20111007
  12. PANITUMUMAB [Suspect]
     Active Substance: PANITUMUMAB
     Indication: COLORECTAL CANCER
     Dosage: 336 MG, Q2WK
     Route: 041
     Dates: start: 20111004, end: 20111018
  13. ZOMETA [Concomitant]
     Active Substance: ZOLEDRONIC ACID
     Indication: METASTASES TO BONE
     Dosage: 4 MG, Q2WEEKS
     Route: 050
     Dates: start: 20110929, end: 20111020
  14. MAGLAX [Concomitant]
     Active Substance: MAGNESIUM OXIDE
     Dosage: 750 MG, UNK
     Route: 048
     Dates: end: 20111016
  15. GASMOTIN [Concomitant]
     Active Substance: MOSAPRIDE CITRATE
     Dosage: 15 MG, UNK
     Route: 048
     Dates: start: 20110912, end: 20111017
  16. FENTOS [Concomitant]
     Active Substance: FENTANYL
     Indication: BACK PAIN
     Dosage: 2 MG, UNK
     Route: 062
     Dates: start: 20110929, end: 20111024
  17. FLUOROURACIL. [Concomitant]
     Active Substance: FLUOROURACIL
     Dosage: 2900 MG, Q2WEEKS
     Route: 041
     Dates: start: 20111004, end: 20111006
  18. DECADRON [Concomitant]
     Active Substance: DEXAMETHASONE
     Indication: PROPHYLAXIS
     Dosage: 6.6 MG, Q2WEEKS
     Route: 065
     Dates: start: 20110916, end: 20111018
  19. ARTIST [Concomitant]
     Active Substance: CARVEDILOL
     Dosage: 2.5 MG, UNK
     Route: 048
     Dates: end: 20111016
  20. GASCON [Concomitant]
     Active Substance: DIMETHICONE
     Dosage: 240 MG, UNK
     Route: 048
     Dates: end: 20111016
  21. FLUOROURACIL. [Concomitant]
     Active Substance: FLUOROURACIL
     Indication: COLORECTAL CANCER
     Dosage: 660 MG, Q2WEEKS
     Route: 040
     Dates: start: 20110916, end: 20110916
  22. FLUOROURACIL. [Concomitant]
     Active Substance: FLUOROURACIL
     Dosage: 483 MG, Q2WEEKS
     Route: 040
     Dates: start: 20111004, end: 20111004
  23. FLUOROURACIL. [Concomitant]
     Active Substance: FLUOROURACIL
     Dosage: 2320 MG, Q2WEEKS
     Route: 041
     Dates: start: 20111018, end: 20111020
  24. ALOXI [Concomitant]
     Active Substance: PALONOSETRON HYDROCHLORIDE
     Indication: PROPHYLAXIS
     Dosage: 0.75 MG, Q2WEEKS
     Route: 050
     Dates: start: 20110916, end: 20111018
  25. WYPAX [Concomitant]
     Active Substance: LORAZEPAM
     Dosage: 0.5 MG, UNK
     Route: 048
     Dates: start: 20111011, end: 20111017
  26. IRINOTECAN HYDROCHLORIDE. [Suspect]
     Active Substance: IRINOTECAN HYDROCHLORIDE
     Dosage: 240 MG, Q2WK
     Route: 041
     Dates: start: 20110916, end: 20110916
  27. PYDOXAL [Concomitant]
     Active Substance: PYRIDOXAL
     Dosage: 30 MG, UNK
     Route: 048
     Dates: start: 20111011, end: 20111017
  28. MAGNESIUM OXIDE. [Concomitant]
     Active Substance: MAGNESIUM OXIDE
     Dosage: 1000 MG, UNK
     Route: 048
     Dates: start: 20110929, end: 20111017
  29. IRINOTECAN HYDROCHLORIDE. [Suspect]
     Active Substance: IRINOTECAN HYDROCHLORIDE
     Indication: COLORECTAL CANCER
     Dosage: 180 MG, Q2WK
     Route: 041
     Dates: start: 20101004, end: 20101018
  30. BASEN [Concomitant]
     Active Substance: VOGLIBOSE
     Dosage: 0.9 MG, UNK
     Route: 048
     Dates: end: 20111016
  31. CALCIUM LEVOFOLINATE [Concomitant]
     Active Substance: LEVOLEUCOVORIN CALCIUM
     Indication: COLORECTAL CANCER
     Dosage: 325 MG, Q2WEEKS
     Route: 041
     Dates: start: 20110916, end: 20110916
  32. CALCIUM LEVOFOLINATE [Concomitant]
     Active Substance: LEVOLEUCOVORIN CALCIUM
     Dosage: 322 MG, Q2WEEKS
     Route: 041
     Dates: start: 20111004, end: 20111018
  33. CADUET [Concomitant]
     Active Substance: AMLODIPINE BESYLATE\ATORVASTATIN CALCIUM
     Dosage: 1 DF, UNK
     Route: 048
     Dates: start: 20110912, end: 20111016

REACTIONS (7)
  - Condition aggravated [Unknown]
  - Cheilitis [Unknown]
  - Aphthous stomatitis [Unknown]
  - Interstitial lung disease [Fatal]
  - Nausea [Unknown]
  - Neutrophil count decreased [Unknown]
  - Toxic epidermal necrolysis [Fatal]

NARRATIVE: CASE EVENT DATE: 20111011
